FAERS Safety Report 13116855 (Version 5)
Quarter: 2020Q1

REPORT INFORMATION
  Report Type: Spontaneous
  Country: US (occurrence: US)
  Receive Date: 20170116
  Receipt Date: 20200203
  Transmission Date: 20200409
  Serious: No
  Sender: FDA-Public Use
  Company Number: US-PFIZER INC-2017017185

PATIENT
  Age: 79 Year
  Sex: Female
  Weight: 101 kg

DRUGS (17)
  1. BABY ASPIRIN [Concomitant]
     Active Substance: ASPIRIN
     Indication: ANTICOAGULANT THERAPY
     Dosage: 81 MG, 1X/DAY
     Route: 048
     Dates: start: 2015
  2. REVATIO [Suspect]
     Active Substance: SILDENAFIL CITRATE
     Dosage: 20 MG, 3X/DAY
     Route: 048
     Dates: start: 201205
  3. REVATIO [Suspect]
     Active Substance: SILDENAFIL CITRATE
     Indication: PULMONARY ARTERIAL HYPERTENSION
     Dosage: 20 MG, 3X/DAY
     Route: 048
     Dates: start: 20110515
  4. LETAIRIS [Concomitant]
     Active Substance: AMBRISENTAN
     Indication: PULMONARY ARTERIAL HYPERTENSION
     Dosage: 10 MG, UNK
     Dates: start: 201108
  5. LETAIRIS [Concomitant]
     Active Substance: AMBRISENTAN
     Dosage: 5 MG, 1X/DAY
     Route: 048
  6. AMBRISENTAN [Concomitant]
     Active Substance: AMBRISENTAN
     Indication: PULMONARY ARTERIAL HYPERTENSION
     Dosage: 5 MG, DAILY
     Route: 048
     Dates: start: 2012
  7. CARVEDILOL. [Concomitant]
     Active Substance: CARVEDILOL
     Dosage: 25 MG, 2X/DAY
     Route: 048
     Dates: start: 2012
  8. POTASSIUM [Concomitant]
     Active Substance: POTASSIUM
     Dosage: UNK
     Dates: start: 2009
  9. PRAVASTATIN. [Concomitant]
     Active Substance: PRAVASTATIN
     Indication: BLOOD CHOLESTEROL
     Dosage: 20 MG, 1X/DAY
     Route: 048
     Dates: start: 2012
  10. GLIMEPIRIDE. [Concomitant]
     Active Substance: GLIMEPIRIDE
     Indication: DIABETES MELLITUS
     Dosage: 1 MG, 1X/DAY
     Dates: start: 2012
  11. AMBRISENTAN [Concomitant]
     Active Substance: AMBRISENTAN
     Dosage: UNK
     Dates: start: 201108
  12. CARVEDILOL. [Concomitant]
     Active Substance: CARVEDILOL
     Indication: CARDIAC DISORDER
     Dosage: UNK
     Dates: start: 201009
  13. POTASSIUM [Concomitant]
     Active Substance: POTASSIUM
     Indication: MINERAL SUPPLEMENTATION
     Dosage: 20 MG, 2X/DAY
  14. TORSEMIDE. [Concomitant]
     Active Substance: TORSEMIDE
     Indication: DIURETIC THERAPY
     Dosage: 40 MG, 1X/DAY
     Route: 048
     Dates: start: 2013
  15. IMIPRAMINE [Concomitant]
     Active Substance: IMIPRAMINE
     Indication: MICTURITION DISORDER
     Dosage: 25 MG, 1X/DAY
     Route: 048
     Dates: start: 201605
  16. VESICARE [Concomitant]
     Active Substance: SOLIFENACIN SUCCINATE
     Indication: MICTURITION DISORDER
     Dosage: 10 MG, 1X/DAY
     Route: 048
     Dates: start: 200707
  17. POTASSIUM [Concomitant]
     Active Substance: POTASSIUM
     Dosage: UNK  [POTASSIUM AFTER DINNER]
     Dates: start: 2014

REACTIONS (5)
  - Inappropriate schedule of product administration [Unknown]
  - Product dose omission [Not Recovered/Not Resolved]
  - Blood potassium decreased [Recovered/Resolved]
  - Insomnia [Unknown]
  - Memory impairment [Not Recovered/Not Resolved]

NARRATIVE: CASE EVENT DATE: 201205
